FAERS Safety Report 7703422-6 (Version None)
Quarter: 2011Q3

REPORT INFORMATION
  Report Type: 
  Country: None (occurrence: None)
  Receive Date: 20110823
  Receipt Date: 20110823
  Transmission Date: 20111222
  Serious: No
  Sender: FDA-Public Use
  Company Number: None

PATIENT
  Age: 30 Year
  Sex: Male
  Weight: 68.038 kg

DRUGS (1)
  1. METHADONE HYDROCHLORIDE [Suspect]
     Indication: DRUG DEPENDENCE
     Dosage: 1 DOSE/100MGS
     Route: 048
     Dates: start: 20110402, end: 20110818

REACTIONS (7)
  - DRUG INEFFECTIVE [None]
  - CIRCUMSTANCE OR INFORMATION CAPABLE OF LEADING TO MEDICATION ERROR [None]
  - DRUG WITHDRAWAL SYNDROME [None]
  - MALAISE [None]
  - PRODUCT TASTE ABNORMAL [None]
  - PRODUCT MEASURED POTENCY ISSUE [None]
  - PRODUCT COLOUR ISSUE [None]
